FAERS Safety Report 10220569 (Version 1)
Quarter: 2014Q2

REPORT INFORMATION
  Report Type: Spontaneous
  Country: US (occurrence: None)
  Receive Date: 20140605
  Receipt Date: 20140605
  Transmission Date: 20141212
  Serious: Yes (Hospitalization, Disabling)
  Sender: FDA-Public Use
  Company Number: None

PATIENT
  Age: 59 Year
  Sex: Female
  Weight: 85.73 kg

DRUGS (14)
  1. HALOPER HALOPERIDOL [Suspect]
     Indication: SCHIZOPHRENIA
     Dosage: 100 MG I INJECT 1.5 INJECT 28 DAYS
     Dates: start: 20040801, end: 20140513
  2. LEVOTHYROXIN [Concomitant]
  3. ATORVASTATIN [Concomitant]
  4. METFORMIN [Concomitant]
  5. QUETIAPINE [Concomitant]
  6. RESORIL [Concomitant]
  7. BENZTROPINE [Concomitant]
  8. LISINOPRIL [Concomitant]
  9. PROZAX [Concomitant]
  10. CYANOCOBALA [Concomitant]
  11. SYMICORT [Concomitant]
  12. CANE [Concomitant]
  13. BOOST GLUCOSE CONTROL [Concomitant]
  14. CYANOCOBALA B 12 [Concomitant]

REACTIONS (8)
  - Musculoskeletal stiffness [None]
  - Myalgia [None]
  - Dyskinesia [None]
  - Musculoskeletal pain [None]
  - Pain in extremity [None]
  - Dysarthria [None]
  - Gait disturbance [None]
  - Adverse drug reaction [None]
